FAERS Safety Report 24603238 (Version 3)
Quarter: 2025Q3

REPORT INFORMATION
  Report Type: Other
  Country: US (occurrence: US)
  Receive Date: 20241111
  Receipt Date: 20250701
  Transmission Date: 20251021
  Serious: No
  Sender: TRAVERE THERAPEUTICS
  Company Number: US-TRAVERE-2024TVT01108

PATIENT
  Age: 26 Year
  Sex: Male

DRUGS (2)
  1. FILSPARI [Suspect]
     Active Substance: SPARSENTAN
     Indication: IgA nephropathy
     Route: 048
     Dates: start: 202407
  2. FILSPARI [Suspect]
     Active Substance: SPARSENTAN
     Indication: Haematuria
     Route: 048

REACTIONS (2)
  - Blood potassium decreased [Recovered/Resolved]
  - Hyperkalaemia [Recovered/Resolved]
